FAERS Safety Report 12322404 (Version 1)
Quarter: 2016Q2

REPORT INFORMATION
  Report Type: Spontaneous
  Country: US (occurrence: US)
  Receive Date: 20160502
  Receipt Date: 20160502
  Transmission Date: 20160815
  Serious: Yes (Other)
  Sender: FDA-Public Use
  Company Number: US-BEH-2015056495

PATIENT
  Sex: Female
  Weight: 121 kg

DRUGS (28)
  1. ZEMAIRA [Suspect]
     Active Substance: .ALPHA.1-PROTEINASE INHIBITOR HUMAN
     Route: 042
  2. ZEMAIRA [Suspect]
     Active Substance: .ALPHA.1-PROTEINASE INHIBITOR HUMAN
     Indication: ALPHA-1 ANTI-TRYPSIN DEFICIENCY
  3. HEPARIN [Concomitant]
     Active Substance: HEPARIN SODIUM
  4. BUSPIRONE [Concomitant]
     Active Substance: BUSPIRONE HYDROCHLORIDE
  5. LEVOCETIRIZINE [Concomitant]
     Active Substance: LEVOCETIRIZINE
  6. QVAR [Concomitant]
     Active Substance: BECLOMETHASONE DIPROPIONATE
  7. SODIUM CHLORIDE. [Concomitant]
     Active Substance: SODIUM CHLORIDE
  8. OXYGEN. [Concomitant]
     Active Substance: OXYGEN
  9. CENTRUM SILVER [Concomitant]
     Active Substance: MINERALS\VITAMINS
  10. GLUCOSAMINE + CHONDROITIN [Concomitant]
  11. L-M-X [Concomitant]
  12. BOTOX [Concomitant]
     Active Substance: ONABOTULINUMTOXINA
  13. NEXIUM [Concomitant]
     Active Substance: ESOMEPRAZOLE MAGNESIUM
  14. CYCLOBENZAPRINE [Concomitant]
     Active Substance: CYCLOBENZAPRINE
  15. FISH OIL [Concomitant]
     Active Substance: FISH OIL
  16. DIPHENHYDRAMINE. [Concomitant]
     Active Substance: DIPHENHYDRAMINE
  17. VITAMIN D [Concomitant]
     Active Substance: CHOLECALCIFEROL
  18. STIOLTO RESPIMAT [Concomitant]
     Active Substance: OLODATEROL HYDROCHLORIDE\TIOTROPIUM BROMIDE MONOHYDRATE
  19. BUDESONIDE. [Concomitant]
     Active Substance: BUDESONIDE
  20. CYMBALTA [Concomitant]
     Active Substance: DULOXETINE HYDROCHLORIDE
  21. CALCIUM [Concomitant]
     Active Substance: CALCIUM
  22. PROAIR HFA [Concomitant]
     Active Substance: ALBUTEROL SULFATE
  23. ZAFIRLUKAST. [Concomitant]
     Active Substance: ZAFIRLUKAST
  24. PRAMIPEXOLE. [Concomitant]
     Active Substance: PRAMIPEXOLE
  25. LEVOTHYROXINE. [Concomitant]
     Active Substance: LEVOTHYROXINE
  26. LEVAQUIN [Concomitant]
     Active Substance: LEVOFLOXACIN
  27. EPIPEN [Concomitant]
     Active Substance: EPINEPHRINE
  28. CLARITIN [Concomitant]
     Active Substance: LORATADINE

REACTIONS (3)
  - Dyspnoea [Unknown]
  - Cough [Unknown]
  - Bronchitis [Unknown]
